FAERS Safety Report 24026467 (Version 1)
Quarter: 2024Q2

REPORT INFORMATION
  Report Type: Spontaneous
  Country: US (occurrence: US)
  Receive Date: 20240628
  Receipt Date: 20240628
  Transmission Date: 20240716
  Serious: Yes (Life-Threatening, Hospitalization, Other)
  Sender: FDA-Public Use
  Company Number: US-MLMSERVICE-20240612-PI094352-00117-2

PATIENT
  Sex: Female

DRUGS (6)
  1. DEXAMETHASONE [Suspect]
     Active Substance: DEXAMETHASONE
     Indication: Respiratory failure
     Dosage: 10 MILLIGRAM
     Route: 042
  2. DEXAMETHASONE [Suspect]
     Active Substance: DEXAMETHASONE
     Indication: COVID-19
     Dosage: 40 MILLIGRAM (10-40 MG AT A TIME)
     Route: 042
  3. DEXAMETHASONE [Suspect]
     Active Substance: DEXAMETHASONE
     Indication: Hypoxia
     Dosage: 10 MILLIGRAM (10-40 MG AT A TIME)
     Route: 042
  4. OXYGEN [Concomitant]
     Active Substance: OXYGEN
     Indication: Chronic obstructive pulmonary disease
     Dosage: 5 LITER
     Route: 065
  5. OXYGEN [Concomitant]
     Active Substance: OXYGEN
     Indication: Oxygen therapy
     Dosage: 4 LITER (2-4 L/MIN)
     Route: 065
  6. OXYGEN [Concomitant]
     Active Substance: OXYGEN
     Dosage: 2 LITER (2-4 L/MIN )
     Route: 065

REACTIONS (8)
  - Nocardiosis [Recovered/Resolved]
  - Pneumonia fungal [Recovered/Resolved]
  - Cerebral nocardiosis [Recovered/Resolved]
  - Lung abscess [Recovered/Resolved]
  - Brain abscess [Recovered/Resolved]
  - Paraspinal abscess [Recovered/Resolved]
  - Abscess soft tissue [Recovered/Resolved]
  - Steroid diabetes [Unknown]
